FAERS Safety Report 10562550 (Version 1)
Quarter: 2014Q4

REPORT INFORMATION
  Report Type: Spontaneous
  Country: US (occurrence: None)
  Receive Date: 20141103
  Receipt Date: 20141103
  Transmission Date: 20150529
  Serious: Yes (Disabling)
  Sender: FDA-Public Use
  Company Number: None

PATIENT
  Age: 74 Year
  Sex: Male
  Weight: 74.84 kg

DRUGS (1)
  1. AZELASTINE HYDROCHLORIDE AEROSOL SPRAY 137 MCG 0.1% SPR MED WALLACE [Suspect]
     Active Substance: AZELASTINE HYDROCHLORIDE
     Indication: UPPER-AIRWAY COUGH SYNDROME
     Dosage: SPRAYS EACH NOSTRIL
     Route: 045
     Dates: start: 20121212, end: 20141003

REACTIONS (8)
  - Impaired work ability [None]
  - Back pain [None]
  - Abdominal pain lower [None]
  - Dysphagia [None]
  - Oropharyngeal pain [None]
  - Abdominal pain [None]
  - Bradyphrenia [None]
  - Decreased activity [None]

NARRATIVE: CASE EVENT DATE: 201208
